FAERS Safety Report 6301419-4 (Version None)
Quarter: 2009Q3

REPORT INFORMATION
  Report Type: 
  Country: None (occurrence: None)
  Receive Date: 20090807
  Receipt Date: 20090730
  Transmission Date: 20100115
  Serious: Yes (Hospitalization)
  Sender: FDA-Public Use
  Company Number: US-BAYER-200928596NA

PATIENT
  Age: 60 Year
  Sex: Female

DRUGS (1)
  1. LEUKINE [Suspect]
     Indication: BREAST CANCER FEMALE
     Dosage: FORMULATION LIQUID 500 MCG/ML
     Dates: start: 20090608, end: 20090730

REACTIONS (3)
  - ANAPHYLACTIC SHOCK [None]
  - EYE SWELLING [None]
  - PHARYNGEAL OEDEMA [None]
